FAERS Safety Report 20709345 (Version 1)
Quarter: 2022Q2

REPORT INFORMATION
  Report Type: Spontaneous
  Country: US (occurrence: US)
  Receive Date: 20220414
  Receipt Date: 20220414
  Transmission Date: 20220720
  Serious: Yes (Death, Other)
  Sender: FDA-Public Use
  Company Number: US-Shilpa Medicare Limited-SML-US-2022-00351

PATIENT
  Age: 22 Month
  Sex: Male

DRUGS (3)
  1. BUSULFAN [Suspect]
     Active Substance: BUSULFAN
     Indication: Neuroblastoma
     Route: 065
  2. IMATINIB [Suspect]
     Active Substance: IMATINIB
     Indication: Respiratory failure
  3. METHYLPREDNISOLONE [Suspect]
     Active Substance: METHYLPREDNISOLONE
     Indication: Respiratory failure

REACTIONS (10)
  - Interstitial lung disease [Unknown]
  - Alveolar proteinosis [Unknown]
  - Pneumothorax [Unknown]
  - Respiratory distress [Unknown]
  - Hypoxia [Unknown]
  - Pseudomonas infection [Unknown]
  - Respiratory failure [Fatal]
  - Bronchiectasis [Unknown]
  - Pulmonary arteriopathy [Unknown]
  - Drug ineffective [Unknown]
